FAERS Safety Report 8617487-0 (Version None)
Quarter: 2012Q3

REPORT INFORMATION
  Report Type: 
  Country: None (occurrence: None)
  Receive Date: 20120824
  Receipt Date: 20111027
  Transmission Date: 20120928
  Serious: No
  Sender: FDA-Public Use
  Company Number: US-ASTRAZENECA-2011SE65502

PATIENT

DRUGS (9)
  1. ISOSORBIDE MONO [Concomitant]
  2. CARVEDILOL [Concomitant]
  3. ALLOPURINOL [Concomitant]
  4. NEBULISER [Concomitant]
  5. LOSARTAN POTASSIUM [Concomitant]
  6. INHALER [Concomitant]
  7. SYMBICORT [Suspect]
     Dosage: TWO TIMES A DAY, ONE PUFF IN THE MORNING AND ONE PUFF AT NIGHT
     Route: 055
  8. FUROSEMIDE [Concomitant]
  9. PREDNISOLONE [Concomitant]

REACTIONS (2)
  - DYSPNOEA [None]
  - INCORRECT DOSE ADMINISTERED [None]
